FAERS Safety Report 19079509 (Version 1)
Quarter: 2021Q1

REPORT INFORMATION
  Report Type: Report from Study
  Country: US (occurrence: US)
  Receive Date: 20210331
  Receipt Date: 20210331
  Transmission Date: 20210420
  Serious: Yes (Other)
  Sender: FDA-Public Use
  Company Number: US-UCBSA-2021013489

PATIENT
  Age: 73 Year
  Sex: Female

DRUGS (1)
  1. BRIVARACETAM [Suspect]
     Active Substance: BRIVARACETAM
     Indication: SEIZURE
     Dosage: 25 MILLIGRAM, 2X/DAY (BID)

REACTIONS (3)
  - Arterial haemorrhage [Not Recovered/Not Resolved]
  - Gait inability [Not Recovered/Not Resolved]
  - Arterial injury [Not Recovered/Not Resolved]

NARRATIVE: CASE EVENT DATE: 20210120
